FAERS Safety Report 10203753 (Version 2)
Quarter: 2014Q2

REPORT INFORMATION
  Report Type: Spontaneous
  Country: IT (occurrence: IT)
  Receive Date: 20140529
  Receipt Date: 20140612
  Transmission Date: 20141212
  Serious: Yes (Hospitalization)
  Sender: FDA-Public Use
  Company Number: IT-JNJFOC-20140510179

PATIENT
  Age: 87 Year
  Sex: Male

DRUGS (7)
  1. HALDOL [Suspect]
     Indication: PRODUCT USED FOR UNKNOWN INDICATION
     Route: 048
     Dates: start: 20130104, end: 20140104
  2. TRITTICO [Suspect]
     Indication: PRODUCT USED FOR UNKNOWN INDICATION
     Route: 048
     Dates: start: 20130104, end: 20140104
  3. CHLORPROMAZINE [Suspect]
     Indication: PRODUCT USED FOR UNKNOWN INDICATION
     Route: 048
     Dates: start: 20130104, end: 20140104
  4. SONGAR [Suspect]
     Indication: PRODUCT USED FOR UNKNOWN INDICATION
     Route: 048
     Dates: start: 20140103, end: 20140104
  5. DONEPEZIL [Concomitant]
     Indication: PRODUCT USED FOR UNKNOWN INDICATION
     Route: 065
  6. CEFTRIAXONE SODIUM [Concomitant]
     Indication: BRONCHITIS
     Route: 065
     Dates: start: 20131225, end: 20140104
  7. LEVOXACIN [Concomitant]
     Indication: BRONCHITIS
     Route: 048
     Dates: start: 20131225, end: 20140104

REACTIONS (10)
  - Tachypnoea [Recovered/Resolved]
  - Sopor [Recovered/Resolved]
  - Pneumonia aspiration [Unknown]
  - Overdose [Unknown]
  - Renal failure chronic [Unknown]
  - Neurodegenerative disorder [Unknown]
  - Lung neoplasm malignant [Unknown]
  - Cardiac failure [Unknown]
  - Hypernatraemia [Unknown]
  - Dehydration [Unknown]
